FAERS Safety Report 7691089-5 (Version None)
Quarter: 2011Q3

REPORT INFORMATION
  Report Type: 
  Country: None (occurrence: None)
  Receive Date: 20110818
  Receipt Date: 20110807
  Transmission Date: 20111222
  Serious: Yes (Other)
  Sender: FDA-Public Use
  Company Number: ES-ELI_LILLY_AND_COMPANY-ES201108002696

PATIENT
  Age: 54 Year
  Sex: Male

DRUGS (6)
  1. OXYCODONE HCL [Concomitant]
     Indication: PAIN
     Dosage: 5 MG, PER 4HRS PRN
     Route: 048
  2. SEPTRA [Concomitant]
     Indication: ADJUVANT THERAPY
     Dosage: 800-160MG/3, 3/W
     Route: 048
  3. LYRICA [Concomitant]
     Indication: PAIN
     Dosage: 75 MG, PER 12 HRS
     Route: 048
  4. ALIMTA [Suspect]
     Indication: LUNG NEOPLASM MALIGNANT
     Dosage: UNK UNK, UNKNOWN
     Dates: start: 20110805
  5. IBUPROFENO [Concomitant]
     Indication: PAIN
     Dosage: 600 MG, 8HRS PRN
  6. OXYCONTIN [Concomitant]
     Indication: PAIN
     Dosage: 20 MG, PER 12 HR
     Route: 048

REACTIONS (2)
  - DYSPNOEA [None]
  - BRONCHOSPASM [None]
